FAERS Safety Report 26185765 (Version 1)
Quarter: 2025Q4

REPORT INFORMATION
  Report Type: Spontaneous
  Country: US (occurrence: US)
  Receive Date: 20251222
  Receipt Date: 20251222
  Transmission Date: 20260118
  Serious: Yes (Life-Threatening, Hospitalization)
  Sender: ORION PHARMA
  Company Number: US-MLMSERVICE-20251210-PI745883-00218-1

PATIENT
  Age: 88 Year
  Sex: Female

DRUGS (1)
  1. METHOTREXATE [Suspect]
     Active Substance: METHOTREXATE
     Indication: Iritis

REACTIONS (7)
  - Fall [Recovering/Resolving]
  - Pulmonary congestion [Recovering/Resolving]
  - Pulmonary hypertension [Recovering/Resolving]
  - Pulmonary oedema [Recovering/Resolving]
  - Acute respiratory failure [Recovering/Resolving]
  - Interstitial lung disease [Recovering/Resolving]
  - Product use in unapproved indication [Unknown]
